FAERS Safety Report 10070134 (Version 3)
Quarter: 2014Q2

REPORT INFORMATION
  Report Type: Report from Study
  Country: AU (occurrence: AU)
  Receive Date: 20140410
  Receipt Date: 20140509
  Transmission Date: 20141212
  Serious: Yes (Other)
  Sender: FDA-Public Use
  Company Number: PHHY2013AU154513

PATIENT
  Sex: Female

DRUGS (3)
  1. AFINITOR [Suspect]
     Indication: BREAST CANCER METASTATIC
     Dosage: 10 MG DAILY
     Route: 048
     Dates: start: 20131029
  2. AFINITOR [Suspect]
     Dosage: 5 MG, DAILY
     Route: 048
     Dates: start: 20131127
  3. EXEMESTANE [Concomitant]
     Dosage: UNK
     Dates: start: 20131018

REACTIONS (6)
  - Carbohydrate antigen 15-3 increased [Unknown]
  - Oral pain [Recovered/Resolved]
  - Malignant neoplasm progression [Unknown]
  - Metastases to bone [Unknown]
  - Rash [Recovered/Resolved]
  - Mouth ulceration [Recovered/Resolved]
